FAERS Safety Report 4497590-X (Version None)
Quarter: 2004Q4

REPORT INFORMATION
  Report Type: 
  Country: None (occurrence: None)
  Receive Date: 20041108
  Receipt Date: 20041025
  Transmission Date: 20050328
  Serious: Yes (Other)
  Sender: FDA-Public Use
  Company Number: JP-JNJFOC-20040704586

PATIENT
  Sex: Male

DRUGS (21)
  1. RISPERDAL [Suspect]
     Route: 049
  2. RISPERDAL [Suspect]
     Route: 049
  3. RISPERDAL [Suspect]
     Route: 049
  4. RISPERDAL [Suspect]
     Route: 049
  5. RISPERDAL [Suspect]
     Route: 049
  6. RISPERDAL [Suspect]
     Route: 049
  7. RISPERDAL [Suspect]
     Indication: SCHIZOPHRENIA
     Route: 049
  8. BIPERIDEN HYDROCHLORIDE [Concomitant]
     Route: 049
  9. BIPERIDEN HYDROCHLORIDE [Concomitant]
     Route: 049
  10. BIPERIDEN HYDROCHLORIDE [Concomitant]
     Route: 049
  11. BIPERIDEN HYDROCHLORIDE [Concomitant]
     Route: 049
  12. BIPERIDEN HYDROCHLORIDE [Concomitant]
     Route: 049
  13. BIPERIDEN HYDROCHLORIDE [Concomitant]
     Route: 049
  14. BIPERIDEN HYDROCHLORIDE [Concomitant]
     Route: 049
  15. BIPERIDEN HYDROCHLORIDE [Concomitant]
     Route: 049
  16. DIAZEPAM [Concomitant]
     Route: 049
  17. DIAZEPAM [Concomitant]
     Route: 049
  18. DIAZEPAM [Concomitant]
     Route: 049
  19. PROPRANOLOL HYDROCHLORIDE [Concomitant]
     Route: 049
  20. TANDOSPIRONE CITRATE [Concomitant]
     Route: 049
  21. TANDOSPIRONE CITRATE [Concomitant]
     Route: 049

REACTIONS (5)
  - AKATHISIA [None]
  - ANAEMIA [None]
  - BLOOD AMYLASE INCREASED [None]
  - DRUG INEFFECTIVE [None]
  - HYPERLIPIDAEMIA [None]
